FAERS Safety Report 23081179 (Version 2)
Quarter: 2023Q4

REPORT INFORMATION
  Report Type: Spontaneous
  Country: DE (occurrence: None)
  Receive Date: 20231018
  Receipt Date: 20231028
  Transmission Date: 20240109
  Serious: Yes (Hospitalization)
  Sender: FDA-Public Use
  Company Number: DE-ROCHE-3441412

PATIENT
  Sex: Male

DRUGS (3)
  1. CELLCEPT [Suspect]
     Active Substance: MYCOPHENOLATE MOFETIL
     Indication: Pemphigus
     Dosage: 2 TABLETS BID
     Route: 065
  2. XARELTO [Concomitant]
     Active Substance: RIVAROXABAN
  3. HYDROCORTISONE [Concomitant]
     Active Substance: HYDROCORTISONE

REACTIONS (2)
  - Intestinal haemorrhage [Unknown]
  - Off label use [Unknown]
